FAERS Safety Report 23997933 (Version 1)
Quarter: 2024Q2

REPORT INFORMATION
  Report Type: Spontaneous
  Country: US (occurrence: US)
  Receive Date: 20240621
  Receipt Date: 20240621
  Transmission Date: 20240716
  Serious: No
  Sender: FDA-Public Use
  Company Number: US-AUROBINDO-AUR-APL-2024-005135

PATIENT
  Age: 72 Year
  Sex: Male
  Weight: 92.517 kg

DRUGS (5)
  1. GLIPIZIDE ER [Suspect]
     Active Substance: GLIPIZIDE
     Indication: Blood glucose abnormal
     Dosage: 5 MILLIGRAM, EVERY MORNING
     Route: 065
     Dates: start: 2023
  2. GLIPIZIDE ER [Suspect]
     Active Substance: GLIPIZIDE
     Dosage: 25 MILLIGRAM, AT BED TIME
     Route: 065
  3. GLIPIZIDE ER [Suspect]
     Active Substance: GLIPIZIDE
     Dosage: 25 MILLIGRAM, EVERY MORNING
     Route: 065
  4. GLIPIZIDE [Suspect]
     Active Substance: GLIPIZIDE
     Indication: Blood glucose abnormal
     Dosage: 10 MILLIGRAM, TWO TIMES A DAY (10MG IN MORNING AND 10MG IN NIGHT )
     Route: 065
     Dates: start: 2023
  5. METFORMIN [Concomitant]
     Active Substance: METFORMIN HYDROCHLORIDE
     Indication: Product used for unknown indication
     Dosage: UNK
     Route: 065

REACTIONS (3)
  - Blood glucose increased [Recovering/Resolving]
  - Drug ineffective [Recovering/Resolving]
  - Product substitution issue [Recovering/Resolving]
